FAERS Safety Report 9746687 (Version 3)
Quarter: 2014Q1

REPORT INFORMATION
  Report Type: Spontaneous
  Country: IT (occurrence: IT)
  Receive Date: 20131211
  Receipt Date: 20140206
  Transmission Date: 20141002
  Serious: Yes (Hospitalization)
  Sender: FDA-Public Use
  Company Number: IT-PFIZER INC-2013351738

PATIENT
  Age: 73 Year
  Sex: Male

DRUGS (10)
  1. TRIATEC [Suspect]
     Indication: MYOCARDIAL ISCHAEMIA
     Dosage: 2.5 MG, 1 TABLET; DAILY
     Route: 048
     Dates: start: 20131018, end: 20131108
  2. KCL-RETARD [Interacting]
     Indication: CARDIAC FAILURE
     Dosage: 2 DF, DAILY
     Route: 048
     Dates: start: 20130920, end: 20131103
  3. ALDACTONE [Interacting]
     Indication: CARDIAC FAILURE
     Dosage: 2 DF, DAILY
     Route: 048
     Dates: start: 20131018, end: 20131103
  4. LASIX [Concomitant]
     Dosage: UNK
  5. ALTIAZEM [Concomitant]
     Dosage: UNK
  6. NEXIUM [Concomitant]
     Dosage: UNK
  7. DIAMICRON [Concomitant]
     Dosage: UNK
  8. SEROQUEL [Concomitant]
     Dosage: UNK
  9. FOSTER [Concomitant]
     Dosage: UNK
  10. CLEXANE [Concomitant]
     Dosage: UNK

REACTIONS (3)
  - Drug interaction [Recovered/Resolved]
  - Hyperkalaemia [Recovered/Resolved]
  - Asthenia [Recovered/Resolved]
